FAERS Safety Report 22102496 (Version 1)
Quarter: 2023Q1

REPORT INFORMATION
  Report Type: Report from Study
  Country: US (occurrence: None)
  Receive Date: 20230316
  Receipt Date: 20230316
  Transmission Date: 20230417
  Serious: Yes (Hospitalization)
  Sender: FDA-Public Use
  Company Number: US-ROCHE-3306730

PATIENT
  Age: 82 Year
  Sex: Female
  Weight: 57.6 kg

DRUGS (8)
  1. OBINUTUZUMAB [Suspect]
     Active Substance: OBINUTUZUMAB
     Indication: Chronic lymphocytic leukaemia
     Dosage: 100 MG AT CYCLE 1 DAY1, 900 MG AT CYCLE 1 DAY 2, 1000 MG AT CYCLE 1 DAY 8 AND DAY 15, 1000 MG AT CYC
     Route: 042
     Dates: start: 20230125, end: 20230222
  2. APG-2575 [Suspect]
     Active Substance: APG-2575
     Indication: Chronic lymphocytic leukaemia
     Route: 048
     Dates: start: 20230219, end: 20230222
  3. ACETAMINOPHEN [Concomitant]
     Active Substance: ACETAMINOPHEN
     Route: 048
  4. ALLOPURINOL [Concomitant]
     Active Substance: ALLOPURINOL
     Route: 048
  5. DIPHENHYDRAMINE [Concomitant]
     Active Substance: DIPHENHYDRAMINE
  6. FAMOTIDINE [Concomitant]
     Active Substance: FAMOTIDINE
  7. FELODIPINE [Concomitant]
     Active Substance: FELODIPINE
     Route: 048
  8. LEVOTHYROXINE [Concomitant]
     Active Substance: LEVOTHYROXINE
     Route: 048

REACTIONS (2)
  - Hypoxia [Not Recovered/Not Resolved]
  - Parainfluenzae virus infection [Not Recovered/Not Resolved]

NARRATIVE: CASE EVENT DATE: 20230222
